FAERS Safety Report 24165653 (Version 5)
Quarter: 2024Q3

REPORT INFORMATION
  Report Type: Spontaneous
  Country: US (occurrence: US)
  Receive Date: 20240802
  Receipt Date: 20240924
  Transmission Date: 20241017
  Serious: Yes (Hospitalization)
  Sender: BLUEPRINT MEDICINES
  Company Number: US-Blueprint Medicines Corporation-4372

PATIENT
  Sex: Male

DRUGS (4)
  1. AYVAKIT [Suspect]
     Active Substance: AVAPRITINIB
     Indication: Gastrointestinal stromal tumour
     Route: 065
  2. AYVAKIT [Suspect]
     Active Substance: AVAPRITINIB
     Route: 048
     Dates: start: 202406
  3. AYVAKIT [Suspect]
     Active Substance: AVAPRITINIB
     Route: 065
  4. AYVAKIT [Suspect]
     Active Substance: AVAPRITINIB
     Route: 065
     Dates: start: 20240722

REACTIONS (8)
  - Liver disorder [Unknown]
  - Hepatic enzyme increased [Not Recovered/Not Resolved]
  - Ocular icterus [Unknown]
  - Vision blurred [Unknown]
  - Periorbital swelling [Not Recovered/Not Resolved]
  - Nausea [Unknown]
  - Lip erythema [Recovered/Resolved]
  - Swelling face [Not Recovered/Not Resolved]
